FAERS Safety Report 6243106-7 (Version None)
Quarter: 2009Q2

REPORT INFORMATION
  Report Type: 
  Country: None (occurrence: None)
  Receive Date: 20090622
  Receipt Date: 20090610
  Transmission Date: 20091009
  Serious: Yes (Other)
  Sender: FDA-Public Use
  Company Number: 2009AL003938

PATIENT
  Sex: 0

DRUGS (2)
  1. DICLOFENAC SODIUM [Suspect]
     Indication: PAIN
  2. XARELTO [Concomitant]

REACTIONS (1)
  - HAEMARTHROSIS [None]
